FAERS Safety Report 15249801 (Version 2)
Quarter: 2018Q4

REPORT INFORMATION
  Report Type: Spontaneous
  Country: US (occurrence: US)
  Receive Date: 20180807
  Receipt Date: 20181123
  Transmission Date: 20190204
  Serious: No
  Sender: FDA-Public Use
  Company Number: US-PFIZER INC-2018182527

PATIENT
  Age: 58 Year
  Sex: Female

DRUGS (9)
  1. TAXOTERE [Suspect]
     Active Substance: DOCETAXEL
     Indication: BREAST CANCER FEMALE
     Dosage: 125 MG, CYCLIC ( 05 CYCLES EVERY THREE WEEKS)
     Dates: start: 20120626, end: 20121009
  2. TAXOTERE [Suspect]
     Active Substance: DOCETAXEL
     Dosage: 148 MG, CYCLIC ( 05 CYCLES EVERY THREE WEEKS)
     Dates: start: 20120626, end: 20121009
  3. NEULASTA [Concomitant]
     Active Substance: PEGFILGRASTIM
     Indication: CHEMOTHERAPY
     Dosage: UNK
  4. BENADRYL [Concomitant]
     Active Substance: DIPHENHYDRAMINE HYDROCHLORIDE
     Indication: NONSPECIFIC REACTION
     Dosage: UNK
  5. PARAPLATIN [Concomitant]
     Active Substance: CARBOPLATIN
     Indication: BREAST CANCER FEMALE
     Dosage: UNK
     Dates: start: 20120626, end: 20121009
  6. PERCOCET /00446701/ [Concomitant]
     Active Substance: ACETAMINOPHEN\OXYCODONE HYDROCHLORIDE\OXYCODONE TEREPHTHALATE
     Indication: PAIN
     Dosage: UNK
  7. TAXOL [Concomitant]
     Active Substance: PACLITAXEL
     Indication: BREAST CANCER FEMALE
     Dosage: UNK
     Dates: start: 20120626, end: 20121009
  8. DOCETAXEL. [Suspect]
     Active Substance: DOCETAXEL
     Indication: BREAST CANCER FEMALE
     Dosage: 125 MG, CYCLIC ( 05 CYCLES EVERY THREE WEEKS)
     Dates: start: 20120626, end: 20121009
  9. DOCETAXEL. [Suspect]
     Active Substance: DOCETAXEL
     Dosage: 148 MG, CYCLIC ( 05 CYCLES EVERY THREE WEEKS)
     Dates: start: 20120626, end: 20121009

REACTIONS (5)
  - Hair texture abnormal [Not Recovered/Not Resolved]
  - Hair colour changes [Not Recovered/Not Resolved]
  - Madarosis [Not Recovered/Not Resolved]
  - Hair disorder [Not Recovered/Not Resolved]
  - Alopecia [Not Recovered/Not Resolved]

NARRATIVE: CASE EVENT DATE: 2012
